FAERS Safety Report 9099676 (Version 4)
Quarter: 2013Q3

REPORT INFORMATION
  Report Type: Spontaneous
  Country: NL (occurrence: NL)
  Receive Date: 20130214
  Receipt Date: 20130723
  Transmission Date: 20140515
  Serious: Yes (Life-Threatening, Other)
  Sender: FDA-Public Use
  Company Number: NL-JNJFOC-20130203824

PATIENT
  Age: 71 Year
  Sex: Female

DRUGS (6)
  1. REMICADE [Suspect]
     Indication: CROHN^S DISEASE
     Route: 042
  2. REMICADE [Suspect]
     Indication: CROHN^S DISEASE
     Dosage: LAST DOSE
     Route: 042
  3. REMICADE [Suspect]
     Indication: CROHN^S DISEASE
     Route: 042
     Dates: start: 20070729, end: 20120629
  4. REMICADE [Suspect]
     Indication: CROHN^S DISEASE
     Route: 042
     Dates: start: 2005
  5. OXYNORM [Concomitant]
     Dosage: ^6 A 7 DD 0.5 ML^
     Route: 065
  6. METHADON [Concomitant]
     Dosage: 2DD 1 ML
     Route: 065

REACTIONS (5)
  - Cerebrovascular accident [Unknown]
  - Salivary gland disorder [Unknown]
  - Dysphagia [Unknown]
  - Eczema [Recovered/Resolved]
  - Rash [Recovered/Resolved]
